FAERS Safety Report 8622660-1 (Version None)
Quarter: 2012Q3

REPORT INFORMATION
  Report Type: 
  Country: None (occurrence: None)
  Receive Date: 20120827
  Receipt Date: 20120816
  Transmission Date: 20120928
  Serious: Yes (Hospitalization)
  Sender: FDA-Public Use
  Company Number: US-JNJFOC-20120809623

PATIENT
  Sex: Male
  Weight: 82.1 kg

DRUGS (1)
  1. REMICADE [Suspect]
     Indication: SARCOIDOSIS
     Route: 042
     Dates: end: 20120622

REACTIONS (3)
  - PNEUMONIA [None]
  - HERPES ZOSTER [None]
  - RENAL FAILURE ACUTE [None]
